FAERS Safety Report 17639511 (Version 3)
Quarter: 2020Q2

REPORT INFORMATION
  Report Type: Spontaneous
  Country: JP (occurrence: JP)
  Receive Date: 20200407
  Receipt Date: 20200416
  Transmission Date: 20200713
  Serious: Yes (Other)
  Sender: FDA-Public Use
  Company Number: JP-UCBSA-2020014477

PATIENT
  Age: 32 Year
  Sex: Female

DRUGS (3)
  1. E KEPPRA [Suspect]
     Active Substance: LEVETIRACETAM
     Indication: EPILEPSY
     Dosage: 500MG DAILY
     Route: 048
     Dates: start: 20200319, end: 20200331
  2. NAUZELIN [Suspect]
     Active Substance: DOMPERIDONE
     Indication: PRODUCT USED FOR UNKNOWN INDICATION
     Dosage: UNK
     Route: 048
     Dates: start: 20200319, end: 20200319
  3. LOXONIN [Suspect]
     Active Substance: LOXOPROFEN SODIUM
     Indication: PRODUCT USED FOR UNKNOWN INDICATION
     Dosage: UNK
     Route: 048
     Dates: start: 20200319, end: 20200328

REACTIONS (4)
  - Blood creatine phosphokinase increased [Unknown]
  - Alanine aminotransferase increased [Unknown]
  - Aspartate aminotransferase increased [Unknown]
  - Pancytopenia [Recovered/Resolved]

NARRATIVE: CASE EVENT DATE: 20200331
